FAERS Safety Report 9172234 (Version 1)
Quarter: 2013Q1

REPORT INFORMATION
  Report Type: Spontaneous
  Country: IT (occurrence: IT)
  Receive Date: 20130319
  Receipt Date: 20130319
  Transmission Date: 20140127
  Serious: Yes (Other)
  Sender: FDA-Public Use
  Company Number: IT-BAXTER-2013BAX009663

PATIENT
  Sex: 0

DRUGS (5)
  1. HOLOXAN [Suspect]
     Indication: OSTEOSARCOMA
     Dosage: 2 G/M2
     Route: 065
  2. METHOTREXATE [Suspect]
     Indication: OSTEOSARCOMA
     Dosage: 12 G/M2
     Route: 065
  3. CISPLATIN [Suspect]
     Indication: OSTEOSARCOMA
     Route: 065
  4. DOXORUBICIN [Suspect]
     Indication: OSTEOSARCOMA
     Route: 065
  5. DOXORUBICIN [Suspect]
     Route: 065

REACTIONS (1)
  - Myelodysplastic syndrome [Unknown]
